FAERS Safety Report 17622219 (Version 1)
Quarter: 2020Q2

REPORT INFORMATION
  Report Type: Report from Study
  Country: GB (occurrence: GB)
  Receive Date: 20200403
  Receipt Date: 20200403
  Transmission Date: 20200713
  Serious: Yes (Death, Hospitalization, Other)
  Sender: FDA-Public Use
  Company Number: GB-PFIZER INC-2020133091

PATIENT
  Age: 72 Year
  Sex: Female

DRUGS (16)
  1. DOMPERIDONE [Concomitant]
     Active Substance: DOMPERIDONE
     Dosage: 30 MG, UNK
     Route: 048
     Dates: start: 201504
  2. DEXAMETHASONE. [Concomitant]
     Active Substance: DEXAMETHASONE
     Dosage: 2 MG, UNK
     Route: 048
     Dates: start: 20150815, end: 20150828
  3. DEXAMETHASONE. [Concomitant]
     Active Substance: DEXAMETHASONE
     Dosage: 6.6 MG, EVERY 3 WEEKS
     Route: 042
     Dates: start: 201504, end: 20150707
  4. GRANISETRON [Concomitant]
     Active Substance: GRANISETRON
     Dosage: 1 MG, UNK
     Route: 042
     Dates: start: 201504
  5. ASPIRIN [ACETYLSALICYLIC ACID] [Concomitant]
     Active Substance: ASPIRIN
     Dosage: 75 MG, DAILY
     Route: 048
     Dates: start: 2001
  6. CHLORPHENIRAMINE [CHLORPHENAMINE] [Concomitant]
     Active Substance: CHLORPHENIRAMINE
     Dosage: 10 MG, EVERY 3 WEEKS
     Route: 042
     Dates: start: 201504
  7. DEXAMETHASONE. [Concomitant]
     Active Substance: DEXAMETHASONE
     Dosage: 8 MG, UNK
     Route: 048
     Dates: start: 20150414, end: 20150708
  8. DIPYRIDAMOLE. [Concomitant]
     Active Substance: DIPYRIDAMOLE
     Dosage: 25 MG, 2X/DAY (EVERY HALF DAY)
     Route: 048
     Dates: start: 2001
  9. DOMPERIDONE [Concomitant]
     Active Substance: DOMPERIDONE
     Dosage: 10 MG, UNK
     Route: 048
     Dates: start: 20150326, end: 20150728
  10. TRASTUZUMAB/VORHYALURONIDASE ALFA [Suspect]
     Active Substance: HYALURONIDASE (HUMAN RECOMBINANT)\TRASTUZUMAB
     Dosage: 600 MG, EVERY 3 WEEKS
     Route: 058
     Dates: start: 20150326, end: 20150728
  11. PERTUZUMAB. [Suspect]
     Active Substance: PERTUZUMAB
     Dosage: 420 MG, EVERY 3 WEEKS
     Route: 042
     Dates: start: 20150326, end: 20150728
  12. ATORVASTATIN [Concomitant]
     Active Substance: ATORVASTATIN
     Dosage: 60 MG, DAILY
     Route: 048
     Dates: start: 2001
  13. LOPERAMIDE [Concomitant]
     Active Substance: LOPERAMIDE
     Indication: PROPHYLAXIS
     Dosage: 2 MG, AS NEEDED
     Route: 048
     Dates: start: 201504, end: 20150818
  14. ONDANSETRON [Concomitant]
     Active Substance: ONDANSETRON
     Dosage: 8 MG, 2X/DAY (EVERY 0.5 DAY)
     Route: 048
     Dates: start: 20150326, end: 20150707
  15. DOCETAXEL. [Suspect]
     Active Substance: DOCETAXEL
     Dosage: 140 MG, EVERY 3 WEEKS
     Route: 042
     Dates: start: 20150326, end: 20150707
  16. DEXAMETHASONE. [Concomitant]
     Active Substance: DEXAMETHASONE
     Dosage: 3.3 MG, EVERY 3 WEEKS
     Route: 042
     Dates: start: 20150812, end: 20150818

REACTIONS (14)
  - Melaena [Recovered/Resolved]
  - Abdominal pain [Recovered/Resolved]
  - Body temperature increased [Recovered/Resolved]
  - Neutropenic sepsis [Recovered/Resolved]
  - Oesophagitis [Recovered/Resolved]
  - Diarrhoea [Recovered/Resolved]
  - Pain [Recovered/Resolved]
  - Blood potassium decreased [Unknown]
  - Febrile neutropenia [Recovered/Resolved]
  - Nausea [Not Recovered/Not Resolved]
  - Dehydration [Recovered/Resolved]
  - Neutropenia [Recovered/Resolved]
  - Vomiting [Recovered/Resolved]
  - Constipation [Recovered/Resolved]

NARRATIVE: CASE EVENT DATE: 20150513
